FAERS Safety Report 9289863 (Version 1)
Quarter: 2013Q2

REPORT INFORMATION
  Report Type: Report from Study
  Country: US (occurrence: US)
  Receive Date: 20130515
  Receipt Date: 20130515
  Transmission Date: 20140414
  Serious: Yes (Other)
  Sender: FDA-Public Use
  Company Number: PHEH2013US008713

PATIENT
  Age: 45 Year
  Sex: Female
  Weight: 86.17 kg

DRUGS (14)
  1. GILENYA [Suspect]
     Indication: MULTIPLE SCLEROSIS
     Dosage: 0.5 MG, QD
     Route: 048
     Dates: end: 20130416
  2. GABAPENTIN [Concomitant]
     Indication: DYSAESTHESIA
     Dosage: 1 DF, TID
  3. GABAPENTIN [Concomitant]
     Dosage: 2 DF, TID
  4. B COMPLEX [Concomitant]
     Dosage: 1 DF, QD
     Route: 048
  5. CALCIUM MAGNESIUM ZINC [Concomitant]
     Dosage: 1 DF, TID
     Route: 048
  6. CARBAMAZEPINE [Concomitant]
     Dosage: 2 DF, BID
     Route: 048
  7. EFFEXOR XR [Concomitant]
     Indication: DEPRESSION
     Dosage: 1 DF, QHS
     Route: 048
  8. FISH OIL [Concomitant]
     Dosage: 2 DF, QD
     Route: 048
  9. MULTIVITAMIN AND MINERAL SUPPLEMENT [Concomitant]
     Route: 048
  10. POTASSIUM GLUCONATE [Concomitant]
     Route: 048
  11. TRAZODONE [Concomitant]
     Dosage: 2 DF, QHS
     Route: 048
  12. VITAMIN D3 [Concomitant]
     Dosage: 1 DF, TID
     Route: 048
  13. FIORICET [Concomitant]
     Indication: HEADACHE
     Route: 048
  14. BUTALBITAL, ACETAMINOPHEN + CAFFEINE [Concomitant]

REACTIONS (7)
  - Urticaria [Unknown]
  - Rash generalised [Unknown]
  - Pain of skin [Unknown]
  - Eye swelling [Unknown]
  - Contusion [Unknown]
  - Myalgia [Recovering/Resolving]
  - Dyspnoea [Unknown]
